FAERS Safety Report 18544090 (Version 1)
Quarter: 2020Q4

REPORT INFORMATION
  Report Type: Spontaneous
  Country: DE (occurrence: DE)
  Receive Date: 20201125
  Receipt Date: 20201125
  Transmission Date: 20210114
  Serious: Yes (Hospitalization)
  Sender: FDA-Public Use
  Company Number: DE-TEVA-2020-DE-1851621

PATIENT
  Age: 78 Year
  Sex: Female
  Weight: 98 kg

DRUGS (18)
  1. PREGABALIN. [Suspect]
     Active Substance: PREGABALIN
     Dosage: 75 MILLIGRAM DAILY; 1-1-1-0
  2. DIGITOXIN [Suspect]
     Active Substance: DIGITOXIN
     Dosage: .1 MILLIGRAM DAILY; 1-0-0-0
  3. LERCANIDIPIN [Concomitant]
     Active Substance: LERCANIDIPINE
     Dosage: 20 MILLIGRAM DAILY; 1-0-0-0
  4. BISOPROLOL [Suspect]
     Active Substance: BISOPROLOL
     Dosage: 10 MILLIGRAM DAILY;  1-0-0-1
  5. QUETIAPIN [Suspect]
     Active Substance: QUETIAPINE
     Dosage: 2 DOSAGE FORMS DAILY; 50 MG, 0-0-0-2
  6. TORASEMID [Concomitant]
     Active Substance: TORSEMIDE
     Dosage: 100 MILLIGRAM DAILY; 1-1-0-0
  7. HYDROCHLOROTHIAZID [Concomitant]
     Active Substance: HYDROCHLOROTHIAZIDE
     Dosage: 25 MILLIGRAM DAILY;  0-1-0-0
  8. MIRTAZAPIN [Suspect]
     Active Substance: MIRTAZAPINE
     Dosage: 30 MILLIGRAM DAILY;  0-0-0-1
  9. EDOXABAN [Suspect]
     Active Substance: EDOXABAN TOSYLATE
     Dosage: 60 MILLIGRAM DAILY; 1-0-0-0
  10. PIPAMPERON [Suspect]
     Active Substance: PIPAMPERONE HYDROCHLORIDE
     Dosage: 20 MILLIGRAM DAILY; 0-0-1-0
  11. INSULIN DETEMIR [Concomitant]
     Active Substance: INSULIN DETEMIR
     Dosage: 8 IU (INTERNATIONAL UNIT) DAILY; 0-0-1-0
  12. TILIDINE/NALOXONE [Suspect]
     Active Substance: NALOXONE HYDROCHLORIDE\TILIDINE HYDROCHLORIDE
     Dosage: 2 DOSAGE FORMS DAILY; 4|50 MG, 1-0-0-1
  13. KALINOR - RETARD P 600MG [Concomitant]
     Dosage: 6 DOSAGE FORMS DAILY; 600 MG, 2-2-2-0
  14. METAMIZOL [Concomitant]
     Active Substance: METAMIZOLE SODIUM
     Dosage: 500 MILLIGRAM DAILY; 0-0-0-1
  15. LORAZEPAM. [Suspect]
     Active Substance: LORAZEPAM
     Dosage: .5 MILLIGRAM DAILY;  0-0-0-1
  16. PANTOPRAZOL [Concomitant]
     Active Substance: PANTOPRAZOLE SODIUM
     Dosage: 80 MILLIGRAM DAILY;  1-0-1-0
  17. COLECALCIFEROL [Concomitant]
     Active Substance: CHOLECALCIFEROL
     Dosage: 1000 IU (INTERNATIONAL UNIT) DAILY;  1-0-0-0
  18. INSULIN LISPRO [Concomitant]
     Active Substance: INSULIN LISPRO
     Dosage: ACCORDING TO SCHEME

REACTIONS (5)
  - Anaemia [Unknown]
  - Wound [Unknown]
  - Pallor [Unknown]
  - General physical health deterioration [Unknown]
  - Fall [Unknown]
